FAERS Safety Report 8158408-7 (Version None)
Quarter: 2012Q1

REPORT INFORMATION
  Report Type: 
  Country: None (occurrence: None)
  Receive Date: 20120223
  Receipt Date: 20120215
  Transmission Date: 20120608
  Serious: Yes (Hospitalization, Other)
  Sender: FDA-Public Use
  Company Number: US-BAYER-201021530NA

PATIENT
  Age: 33 Year
  Sex: Female
  Weight: 100 kg

DRUGS (10)
  1. METOPROLOL TARTRATE [Concomitant]
     Dosage: 50 MG, BID
     Route: 048
  2. PROTONIX [Concomitant]
     Dosage: 40 MG, QD
     Route: 048
  3. YASMIN [Suspect]
     Indication: PREMENSTRUAL SYNDROME
     Dosage: UNK
     Route: 048
     Dates: start: 20020401, end: 20040801
  4. YAZ [Suspect]
     Indication: PREMENSTRUAL SYNDROME
     Dosage: UNK
     Route: 048
     Dates: start: 20070201, end: 20080201
  5. MULTI-VITAMINS [Concomitant]
     Dosage: UNK UNK, QD
     Route: 048
  6. PHENERGAN [Concomitant]
     Dosage: 25 MG, PRN
     Route: 048
  7. TRICOR [Concomitant]
     Dosage: 145 MG, QD
     Route: 048
  8. LIPITOR [Concomitant]
     Dosage: 20 MG, QD
     Route: 048
  9. RELAFEN [Concomitant]
     Dosage: 500 MG, PRN
     Route: 048
  10. OXYCODONE HCL [Concomitant]
     Dosage: UNK UNK, QD

REACTIONS (6)
  - ACUTE MYOCARDIAL INFARCTION [None]
  - CHOLECYSTITIS CHRONIC [None]
  - BILIARY DYSKINESIA [None]
  - SYNCOPE [None]
  - GALLBLADDER DISORDER [None]
  - CHOLESTEROSIS [None]
